FAERS Safety Report 15124008 (Version 1)
Quarter: 2018Q3

REPORT INFORMATION
  Report Type: Spontaneous
  Country: US (occurrence: US)
  Receive Date: 20180710
  Receipt Date: 20180710
  Transmission Date: 20181010
  Serious: No
  Sender: FDA-Public Use
  Company Number: US-TEVA-788936ACC

PATIENT
  Sex: Female

DRUGS (1)
  1. FINASTERIDE. [Suspect]
     Active Substance: FINASTERIDE
     Indication: ALOPECIA
     Dosage: BEEN USING IT FOR A MONTH, AND TAKES HALF A TABLET ONCE A DAY

REACTIONS (2)
  - Off label use [Unknown]
  - Product use issue [Unknown]
